FAERS Safety Report 10216925 (Version 1)
Quarter: 2014Q2

REPORT INFORMATION
  Report Type: Spontaneous
  Country: US (occurrence: US)
  Receive Date: 20140604
  Receipt Date: 20140604
  Transmission Date: 20141212
  Serious: Yes (Hospitalization)
  Sender: FDA-Public Use
  Company Number: US-GLAXOSMITHKLINE-A1036112A

PATIENT
  Age: 55 Year
  Sex: Male
  Weight: 75 kg

DRUGS (2)
  1. AVANDIA [Suspect]
     Indication: DIABETES MELLITUS
     Dosage: 8MG THREE TIMES PER DAY
     Route: 048
     Dates: start: 200009
  2. AVANDAMET [Suspect]
     Indication: DIABETES MELLITUS
     Route: 048

REACTIONS (8)
  - Cardiovascular disorder [Unknown]
  - Cardiac disorder [Unknown]
  - Angina unstable [Unknown]
  - Cardiac failure acute [Unknown]
  - Ischaemic cardiomyopathy [Unknown]
  - Hypertensive crisis [Unknown]
  - Cardiac failure congestive [Unknown]
  - Myocardial infarction [Unknown]
